FAERS Safety Report 7448325-X (Version None)
Quarter: 2011Q2

REPORT INFORMATION
  Report Type: 
  Country: None (occurrence: None)
  Receive Date: 20110429
  Receipt Date: 20110420
  Transmission Date: 20111010
  Serious: Yes (Other)
  Sender: FDA-Public Use
  Company Number: US-ASTRAZENECA-2011SE22624

PATIENT
  Sex: Female
  Weight: 77.1 kg

DRUGS (11)
  1. HYDROOCHLORTHIAZIDE [Concomitant]
  2. HYDROXYUREA [Concomitant]
     Indication: PANCYTOPENIA
  3. DILANTIN [Concomitant]
     Indication: CONVULSION
     Dates: start: 20070101
  4. NEXIUM [Suspect]
     Indication: GASTROOESOPHAGEAL REFLUX DISEASE
     Route: 048
     Dates: end: 20110101
  5. ASPIRIN [Concomitant]
     Indication: CEREBROVASCULAR ACCIDENT
     Dates: start: 20070101
  6. PRILOSEC [Suspect]
     Indication: GASTROOESOPHAGEAL REFLUX DISEASE
     Route: 048
  7. METOPROLOL SUCCINATE [Concomitant]
     Indication: BLOOD PRESSURE
     Route: 048
  8. ZOCOR [Concomitant]
     Indication: HYPERCHOLESTEROLAEMIA
  9. SANTURA EXPIRA [Concomitant]
     Indication: BLADDER DISORDER
  10. AMLODIPINE [Concomitant]
  11. NEXIUM [Suspect]
     Route: 048
     Dates: start: 20110101

REACTIONS (7)
  - WHITE BLOOD CELL COUNT DECREASED [None]
  - PLATELET COUNT INCREASED [None]
  - RED BLOOD CELL COUNT DECREASED [None]
  - ABDOMINAL PAIN UPPER [None]
  - CEREBROVASCULAR ACCIDENT [None]
  - BLADDER DISORDER [None]
  - DRUG INEFFECTIVE [None]
